FAERS Safety Report 7672594-4 (Version None)
Quarter: 2011Q3

REPORT INFORMATION
  Report Type: 
  Country: None (occurrence: None)
  Receive Date: 20110809
  Receipt Date: 20110803
  Transmission Date: 20111222
  Serious: Yes (Hospitalization, Disabling)
  Sender: FDA-Public Use
  Company Number: US-GILEAD-2011-0042618

PATIENT
  Age: 37 Year
  Sex: Female

DRUGS (2)
  1. LETAIRIS [Suspect]
     Indication: PRODUCT USED FOR UNKNOWN INDICATION
     Route: 048
     Dates: start: 20100923, end: 20110801
  2. REVATIO [Concomitant]

REACTIONS (2)
  - RENAL TRANSPLANT [None]
  - FLUID OVERLOAD [None]
